FAERS Safety Report 16458933 (Version 1)
Quarter: 2019Q2

REPORT INFORMATION
  Report Type: Spontaneous
  Country: US (occurrence: US)
  Receive Date: 20190620
  Receipt Date: 20190620
  Transmission Date: 20190711
  Serious: No
  Sender: FDA-Public Use
  Company Number: US-THERAPEUTICSMD-2019TMD01012

PATIENT
  Age: 57 Year
  Sex: Female
  Weight: 79.37 kg

DRUGS (5)
  1. IMVEXXY [Suspect]
     Active Substance: ESTRADIOL
     Indication: BACTERIAL VAGINOSIS
     Dosage: 4 ?G, 1X/DAY BEFORE BED
     Route: 067
     Dates: start: 20190418, end: 20190501
  2. TRIMETHOPRIM. [Suspect]
     Active Substance: TRIMETHOPRIM
     Dosage: UNK
     Dates: start: 201904
  3. DIAZEPAM. [Suspect]
     Active Substance: DIAZEPAM
     Dosage: 15 MG
     Dates: end: 201904
  4. IMVEXXY [Suspect]
     Active Substance: ESTRADIOL
     Dosage: 4 ?G, 2X/WEEK BEFORE BED
     Route: 067
     Dates: start: 20190502, end: 20190508
  5. DIAZEPAM. [Suspect]
     Active Substance: DIAZEPAM
     Dosage: 10 MG
     Dates: start: 201904

REACTIONS (3)
  - Migraine [Recovered/Resolved]
  - Kidney infection [Unknown]
  - Off label use [Recovered/Resolved]

NARRATIVE: CASE EVENT DATE: 20190418
